FAERS Safety Report 8902433 (Version 2)
Quarter: 2013Q1

REPORT INFORMATION
  Report Type: Report from Study
  Country: JP (occurrence: JP)
  Receive Date: 20121112
  Receipt Date: 20130313
  Transmission Date: 20140127
  Serious: Yes (Hospitalization, Disabling, Other)
  Sender: FDA-Public Use
  Company Number: JP-ROCHE-1153005

PATIENT
  Age: 77 None
  Sex: Male

DRUGS (19)
  1. TOCILIZUMAB [Suspect]
     Indication: RHEUMATOID ARTHRITIS
     Route: 041
     Dates: start: 20080906, end: 20110125
  2. TOCILIZUMAB [Suspect]
     Route: 041
     Dates: start: 20110405, end: 20110510
  3. TOCILIZUMAB [Suspect]
     Route: 041
     Dates: start: 20110707
  4. PREDONINE [Concomitant]
     Indication: RHEUMATOID ARTHRITIS
     Route: 048
     Dates: end: 20081215
  5. PREDONINE [Concomitant]
     Indication: RHEUMATOID ARTHRITIS
     Route: 048
     Dates: start: 20081216, end: 20090119
  6. PREDONINE [Concomitant]
     Indication: RHEUMATOID ARTHRITIS
     Route: 048
     Dates: start: 20090120, end: 20090223
  7. PREDONINE [Concomitant]
     Indication: RHEUMATOID ARTHRITIS
     Dosage: DOSAGE UNCERTAINTY: 5G OR MORE
     Route: 048
  8. PREDONINE [Concomitant]
     Indication: RHEUMATOID ARTHRITIS
     Dosage: BEFORE IT KNEADS
     Route: 048
  9. CELECOX [Concomitant]
     Indication: RHEUMATOID ARTHRITIS
     Route: 048
  10. CELECOX [Concomitant]
     Indication: RHEUMATOID ARTHRITIS
     Dosage: SOON AFTER THE SUPPER THE MORNING
     Route: 048
  11. MAGNESIUM OXIDE [Concomitant]
     Indication: CONSTIPATION
     Route: 048
  12. MAGNESIUM OXIDE [Concomitant]
     Indication: CONSTIPATION
     Route: 048
  13. LOXONIN [Concomitant]
     Indication: RHEUMATOID ARTHRITIS
     Route: 048
  14. GASTER D [Concomitant]
     Dosage: SOON AFTER THE BREAKFAST
     Route: 048
  15. OXYBUTYNIN HYDROCHLORIDE [Concomitant]
     Dosage: AFTER THE SUPPER THE MORNING AND DAYTIME
     Route: 048
  16. MICARDIS [Concomitant]
     Route: 048
  17. AMARYL [Concomitant]
     Indication: DIABETES MELLITUS
     Route: 048
  18. MAGMITT [Concomitant]
     Indication: CONSTIPATION
     Dosage: AFTER THE SUPPER THE MORNING AND DAYTIME
     Route: 048
  19. HALCION [Concomitant]
     Dosage: BEFORE IT SLEEPS
     Route: 048

REACTIONS (6)
  - Cerebral infarction [Recovered/Resolved with Sequelae]
  - Hemiplegia [Unknown]
  - Cognitive disorder [Unknown]
  - Abnormal behaviour [Unknown]
  - Transient ischaemic attack [Unknown]
  - Transaminases increased [Unknown]
